FAERS Safety Report 4876722-5 (Version None)
Quarter: 2006Q1

REPORT INFORMATION
  Report Type: 
  Country: None (occurrence: None)
  Receive Date: 20060110
  Receipt Date: 20050831
  Transmission Date: 20060701
  Serious: Yes (Hospitalization, Other)
  Sender: FDA-Public Use
  Company Number: US-MERCK-0509USA00178

PATIENT
  Age: 40 Year
  Sex: Female
  Weight: 109 kg

DRUGS (1)
  1. VIOXX [Suspect]
     Indication: NEUROPATHY
     Route: 048
     Dates: start: 19991016, end: 20030101

REACTIONS (7)
  - ADVERSE EVENT [None]
  - ANXIETY [None]
  - CARDIAC DISORDER [None]
  - EMOTIONAL DISTRESS [None]
  - MYOCARDIAL INFARCTION [None]
  - PAIN [None]
  - PNEUMONIA [None]
